FAERS Safety Report 8581473-X (Version None)
Quarter: 2012Q3

REPORT INFORMATION
  Report Type: 
  Country: None (occurrence: None)
  Receive Date: 20120809
  Receipt Date: 20120802
  Transmission Date: 20120928
  Serious: Yes (Hospitalization)
  Sender: FDA-Public Use
  Company Number: JP-PFIZER INC-2010116328

PATIENT
  Age: 78 Year
  Sex: Female

DRUGS (9)
  1. PHENYTOIN SODIUM CAP [Concomitant]
     Indication: CONVULSION
     Dosage: UNK
     Dates: start: 20090201
  2. PROPIVERINE HYDROCHLORIDE [Concomitant]
     Dosage: UNK
     Route: 048
  3. GABAPENTIN [Suspect]
     Indication: CONVULSION
     Dosage: UNK
     Route: 048
     Dates: start: 20090301, end: 20090901
  4. CARBAZOCHROME [Concomitant]
     Dosage: UNK
     Route: 048
  5. SODIUM FERROUS CITRATE [Concomitant]
     Dosage: UNK
     Route: 048
  6. RISPERIDONE [Concomitant]
     Dosage: UNK
     Route: 048
  7. FAMOTIDINE [Concomitant]
     Dosage: UNK
     Route: 048
  8. SENNOSIDE [Concomitant]
     Dosage: UNK
     Route: 048
  9. MAGNESIUM OXIDE [Concomitant]
     Dosage: UNK
     Route: 048

REACTIONS (1)
  - LICHENOID KERATOSIS [None]
